FAERS Safety Report 21408552 (Version 1)
Quarter: 2022Q4

REPORT INFORMATION
  Report Type: Spontaneous
  Country: US (occurrence: None)
  Receive Date: 20221004
  Receipt Date: 20221004
  Transmission Date: 20230113
  Serious: Yes (Other)
  Sender: FDA-Public Use
  Company Number: None

PATIENT
  Age: 64 Year
  Sex: Female
  Weight: 80.6 kg

DRUGS (1)
  1. EVUSHELD [Suspect]
     Active Substance: CILGAVIMAB\TIXAGEVIMAB
     Indication: COVID-19 prophylaxis
     Dates: start: 20220901, end: 20221001

REACTIONS (4)
  - Heart rate increased [None]
  - Dyspnoea exertional [None]
  - Atrial fibrillation [None]
  - Anxiety [None]

NARRATIVE: CASE EVENT DATE: 20220901
